FAERS Safety Report 8729702 (Version 2)
Quarter: 2012Q4

REPORT INFORMATION
  Report Type: 
  Country: US (occurrence: US)
  Receive Date: 20120817
  Receipt Date: 20120830
  Transmission Date: 20130627
  Serious: Yes (Disabling, Other)
  Sender: FDA-Public Use
  Company Number: PHEH2012US015933

PATIENT
  Age: 53 Year
  Sex: Female
  Weight: 84.35 kg

DRUGS (6)
  1. FANAPT [Suspect]
     Indication: SCHIZOPHRENIA
     Dosage: 1 mg x 2 days
     Route: 048
     Dates: start: 20120806, end: 20120807
  2. ZOLOFT [Concomitant]
     Dosage: 100 mg, QD
     Route: 048
  3. LATUDA [Concomitant]
     Indication: SCHIZOPHRENIA
     Dosage: 200 mg, QD
     Route: 048
  4. COGENTIN [Concomitant]
     Indication: EXTRAPYRAMIDAL DISORDER
     Dosage: 0.5 mg, BID
     Route: 048
  5. VALIUM [Concomitant]
     Dosage: 5 mg, BID
     Route: 048
  6. LITHIUM [Concomitant]
     Dosage: 300 mg, BID
     Route: 048

REACTIONS (6)
  - Psychotic disorder [Recovered/Resolved]
  - Paranoia [Recovered/Resolved]
  - Hallucination, auditory [Recovered/Resolved]
  - Hallucination, visual [Recovered/Resolved]
  - Hallucination [Recovered/Resolved]
  - Logorrhoea [Recovered/Resolved]
